FAERS Safety Report 20069091 (Version 1)
Quarter: 2021Q4

REPORT INFORMATION
  Report Type: Spontaneous
  Country: CN (occurrence: CN)
  Receive Date: 20211115
  Receipt Date: 20211115
  Transmission Date: 20220303
  Serious: Yes (Other)
  Sender: FDA-Public Use
  Company Number: CN-PFIZER INC-202101527927

PATIENT
  Age: 65 Year
  Sex: Female
  Weight: 59 kg

DRUGS (3)
  1. VIAGRA [Suspect]
     Active Substance: SILDENAFIL CITRATE
     Indication: Hepatopulmonary syndrome
     Dosage: 25 MG, 1X/DAY
     Route: 048
     Dates: start: 20210910, end: 20210915
  2. VENTAVIS [Suspect]
     Active Substance: ILOPROST
     Indication: Hepatopulmonary syndrome
     Dosage: 5 UG, EVERY 3 HOURS
     Route: 055
     Dates: start: 20210910, end: 20210915
  3. VENTAVIS [Suspect]
     Active Substance: ILOPROST
     Dosage: 5 UG, EVERY 6 HOURS
     Route: 055
     Dates: start: 20210923

REACTIONS (6)
  - Arrhythmia [Recovered/Resolved]
  - Hypotension [Recovered/Resolved]
  - Condition aggravated [Unknown]
  - Off label use [Unknown]
  - Product use issue [Unknown]
  - Off label use [Unknown]

NARRATIVE: CASE EVENT DATE: 20210910
